FAERS Safety Report 9657864 (Version 2)
Quarter: 2013Q4

REPORT INFORMATION
  Report Type: Spontaneous
  Country: US (occurrence: US)
  Receive Date: 20131030
  Receipt Date: 20131119
  Transmission Date: 20140711
  Serious: No
  Sender: FDA-Public Use
  Company Number: US-TEVA-437339USA

PATIENT
  Age: 71 Year
  Sex: Female

DRUGS (2)
  1. QNASL [Suspect]
     Indication: EAR DISCOMFORT
     Route: 045
     Dates: start: 201307
  2. RESTASIS [Concomitant]

REACTIONS (2)
  - Insomnia [Unknown]
  - Drug ineffective [Unknown]
